FAERS Safety Report 24611713 (Version 2)
Quarter: 2024Q4

REPORT INFORMATION
  Report Type: Report from Study
  Country: JP (occurrence: JP)
  Receive Date: 20241113
  Receipt Date: 20241204
  Transmission Date: 20250115
  Serious: Yes (Other)
  Sender: ALEXION PHARMACEUTICALS
  Company Number: JP-ASTRAZENECA-230079667_032320_P_1

PATIENT
  Age: 51 Year
  Weight: 42 kg

DRUGS (29)
  1. ANIFROLUMAB [Suspect]
     Active Substance: ANIFROLUMAB
     Indication: Systemic lupus erythematosus
     Dosage: 300 MILLIGRAM, Q4W
  2. PREDNISOLONE [Suspect]
     Active Substance: PREDNISOLONE
     Indication: Systemic lupus erythematosus
     Dosage: NUMBER OF SEPARATE DOSAGES UNKNOWN
  3. PREDNISOLONE [Suspect]
     Active Substance: PREDNISOLONE
     Dosage: NUMBER OF SEPARATE DOSAGES UNKNOWN
  4. PREDNISOLONE [Suspect]
     Active Substance: PREDNISOLONE
     Dosage: NUMBER OF SEPARATE DOSAGES UNKNOWN
  5. PREDNISOLONE [Suspect]
     Active Substance: PREDNISOLONE
     Dosage: NUMBER OF SEPARATE DOSAGES UNKNOWN
  6. PREDNISOLONE [Suspect]
     Active Substance: PREDNISOLONE
     Dosage: NUMBER OF SEPARATE DOSAGES UNKNOWN
  7. PREDNISOLONE [Suspect]
     Active Substance: PREDNISOLONE
     Dosage: NUMBER OF SEPARATE DOSAGES UNKNOWN
  8. PREDNISOLONE [Suspect]
     Active Substance: PREDNISOLONE
     Dosage: NUMBER OF SEPARATE DOSAGES UNKNOWN
  9. PREDNISOLONE [Suspect]
     Active Substance: PREDNISOLONE
     Dosage: NUMBER OF SEPARATE DOSAGES UNKNOWN
  10. PREDNISOLONE [Suspect]
     Active Substance: PREDNISOLONE
     Dosage: NUMBER OF SEPARATE DOSAGES UNKNOWN
  11. PREDNISOLONE [Suspect]
     Active Substance: PREDNISOLONE
     Dosage: NUMBER OF SEPARATE DOSAGES UNKNOWN
  12. PREDNISOLONE [Suspect]
     Active Substance: PREDNISOLONE
     Dosage: NUMBER OF SEPARATE DOSAGES UNKNOWN
  13. PREDNISOLONE [Suspect]
     Active Substance: PREDNISOLONE
     Dosage: NUMBER OF SEPARATE DOSAGES UNKNOWN
  14. PREDNISOLONE [Suspect]
     Active Substance: PREDNISOLONE
     Dosage: NUMBER OF SEPARATE DOSAGES UNKNOWN
  15. DECADRON [Concomitant]
     Active Substance: DEXAMETHASONE
     Indication: Systemic lupus erythematosus
     Dosage: NUMBER OF SEPARATE DOSAGES UNKNOWN
  16. DECADRON [Concomitant]
     Active Substance: DEXAMETHASONE
     Dosage: NUMBER OF SEPARATE DOSAGES UNKNOWN
  17. DECADRON [Concomitant]
     Active Substance: DEXAMETHASONE
     Dosage: NUMBER OF SEPARATE DOSAGES UNKNOWN
  18. DECADRON [Concomitant]
     Active Substance: DEXAMETHASONE
     Dosage: NUMBER OF SEPARATE DOSAGES UNKNOWN
  19. DECADRON [Concomitant]
     Active Substance: DEXAMETHASONE
     Dosage: NUMBER OF SEPARATE DOSAGES UNKNOWN
  20. DECADRON [Concomitant]
     Active Substance: DEXAMETHASONE
     Dosage: NUMBER OF SEPARATE DOSAGES UNKNOWN
  21. TACROLIMUS [Concomitant]
     Active Substance: TACROLIMUS
     Indication: Systemic lupus erythematosus
     Dosage: NUMBER OF SEPARATE DOSAGES UNKNOWN
  22. CELLCEPT [Concomitant]
     Active Substance: MYCOPHENOLATE MOFETIL
     Dosage: NUMBER OF SEPARATE DOSAGES UNKNOWN
  23. ASPIRIN [Concomitant]
     Active Substance: ASPIRIN
     Indication: Prophylaxis
     Dosage: NUMBER OF SEPARATE DOSAGES UNKNOWN
  24. ASPIRIN [Concomitant]
     Active Substance: ASPIRIN
     Dosage: NUMBER OF SEPARATE DOSAGES UNKNOWN
  25. ESOMEPRAZOLE [Concomitant]
     Active Substance: ESOMEPRAZOLE
     Indication: Prophylaxis
     Dosage: NUMBER OF SEPARATE DOSAGES UNKNOWN
  26. ELDECALCITOL [Concomitant]
     Active Substance: ELDECALCITOL
     Indication: Osteoporosis
     Dosage: NUMBER OF SEPARATE DOSAGES UNKNOWN
  27. SULFAMETHOXAZOLE\TRIMETHOPRIM [Concomitant]
     Active Substance: SULFAMETHOXAZOLE\TRIMETHOPRIM
     Indication: Prophylaxis
     Dosage: NUMBER OF SEPARATE DOSAGES UNKNOWN
  28. ALENDRONATE [Concomitant]
     Active Substance: ALENDRONATE SODIUM
     Indication: Osteoporosis
     Dosage: NUMBER OF SEPARATE DOSAGES UNKNOWN
  29. TACROLIMUS ACTAVIS [Concomitant]
     Indication: Systemic lupus erythematosus
     Dosage: NUMBER OF SEPARATE DOSAGES UNKNOWN

REACTIONS (4)
  - Cytomegalovirus viraemia [Recovered/Resolved]
  - Dyslipidaemia [Recovered/Resolved]
  - Hypertension [Recovered/Resolved]
  - C-reactive protein increased [Recovered/Resolved]
